FAERS Safety Report 10381778 (Version 5)
Quarter: 2015Q1

REPORT INFORMATION
  Report Type: Spontaneous
  Country: US (occurrence: US)
  Receive Date: 20140813
  Receipt Date: 20150304
  Transmission Date: 20150720
  Serious: Yes (Hospitalization, Other)
  Sender: FDA-Public Use
  Company Number: US-BAYER-2014-119263

PATIENT
  Age: 33 Year
  Sex: Female
  Weight: 79.37 kg

DRUGS (5)
  1. CYMBALTA [Concomitant]
     Active Substance: DULOXETINE HYDROCHLORIDE
     Indication: ANXIETY
  2. MIRENA [Suspect]
     Active Substance: LEVONORGESTREL
     Indication: CONTRACEPTION
     Dosage: 20 MCG/24HR, CONT
     Route: 015
     Dates: start: 200605, end: 201203
  3. MIRENA [Suspect]
     Active Substance: LEVONORGESTREL
     Indication: CONTRACEPTION
     Dosage: 20 MCG/24HR, CONT
     Route: 015
     Dates: start: 20130406, end: 20140808
  4. CYMBALTA [Concomitant]
     Active Substance: DULOXETINE HYDROCHLORIDE
     Indication: DEPRESSION
     Dosage: UNK
     Dates: start: 201202
  5. CYMBALTA [Concomitant]
     Active Substance: DULOXETINE HYDROCHLORIDE
     Indication: MIGRAINE

REACTIONS (45)
  - Genital haemorrhage [None]
  - Hyperemesis gravidarum [None]
  - Device breakage [None]
  - Uterine cervical pain [None]
  - Crying [None]
  - Swelling [None]
  - Post procedural discharge [None]
  - Somnolence [None]
  - Haemorrhage in pregnancy [None]
  - Emotional distress [None]
  - Depressed mood [None]
  - Depression [Not Recovered/Not Resolved]
  - Device use error [None]
  - Vaginal haemorrhage [None]
  - Incision site haemorrhage [None]
  - Uterine infection [None]
  - Placenta praevia haemorrhage [None]
  - Injury [None]
  - Adnexa uteri pain [None]
  - Medical device discomfort [None]
  - Device difficult to use [None]
  - Malaise [None]
  - Inflammation [None]
  - Infection [None]
  - Uterine hypertonus [None]
  - Musculoskeletal chest pain [None]
  - Abortion late [None]
  - Abdominal pain lower [None]
  - Pain [None]
  - Drug ineffective [None]
  - Anxiety [Not Recovered/Not Resolved]
  - Complication of device removal [None]
  - Uterine perforation [None]
  - Grief reaction [None]
  - Fear [None]
  - Fear of death [None]
  - Pyrexia [None]
  - Musculoskeletal pain [None]
  - Embedded device [None]
  - Device expulsion [None]
  - Contusion [None]
  - Abdominal tenderness [None]
  - Pregnancy with contraceptive device [None]
  - Fatigue [None]
  - Device physical property issue [None]

NARRATIVE: CASE EVENT DATE: 2011
